FAERS Safety Report 7230111-7 (Version None)
Quarter: 2011Q1

REPORT INFORMATION
  Report Type: 
  Country: None (occurrence: None)
  Receive Date: 20110118
  Receipt Date: 20110110
  Transmission Date: 20110831
  Serious: Yes (Hospitalization)
  Sender: FDA-Public Use
  Company Number: FR-TEVA-262886ISR

PATIENT
  Sex: Female
  Weight: 1.7 kg

DRUGS (13)
  1. METHYLPREDNISOLONE SODIUM SUCCINATE [Concomitant]
     Dates: start: 20031223
  2. METHOTREXATE [Suspect]
     Route: 048
     Dates: start: 20031211
  3. DOXORUBICIN [Suspect]
     Dates: start: 20031211
  4. FILGRASTIM [Suspect]
     Indication: CHEMOTHERAPY
     Route: 064
     Dates: start: 20031223, end: 20031225
  5. RED BLOOD CELLS, CONCENTRATED [Concomitant]
  6. OMEPRAZOLE [Suspect]
     Dates: start: 20031223, end: 20031225
  7. CYTARABINE [Suspect]
     Route: 064
     Dates: start: 20031211
  8. VINCRISTINE SULFATE [Concomitant]
  9. CYCLOPHOSPHAMIDE [Suspect]
     Dates: start: 20031211
  10. PIPERACILLIN AND TAZOBACTAM [Concomitant]
     Dates: start: 20031223
  11. PREDNISONE [Concomitant]
     Dates: start: 20031211
  12. PLATELETS [Concomitant]
  13. METHYLPREDNISOLONE ACETATE [Concomitant]
     Dates: start: 20031211

REACTIONS (6)
  - NEONATAL CHOLESTASIS [None]
  - MATERNAL DRUGS AFFECTING FOETUS [None]
  - HYPERBILIRUBINAEMIA [None]
  - GAMMA-GLUTAMYLTRANSFERASE INCREASED [None]
  - JAUNDICE NEONATAL [None]
  - PREMATURE BABY [None]
